FAERS Safety Report 9642117 (Version 2)
Quarter: 2013Q4

REPORT INFORMATION
  Report Type: Spontaneous
  Country: US (occurrence: US)
  Receive Date: 20131023
  Receipt Date: 20131023
  Transmission Date: 20140711
  Serious: Yes (Death, Hospitalization, Other)
  Sender: FDA-Public Use
  Company Number: US-BAXTER-2013BAX039879

PATIENT
  Age: 78 Year
  Sex: Female

DRUGS (1)
  1. DIANEAL LOW CALCIUM [Suspect]
     Indication: PERITONEAL DIALYSIS
     Route: 033
     Dates: start: 20110607, end: 20131008

REACTIONS (4)
  - Death [Fatal]
  - Fall [Unknown]
  - Cervical vertebral fracture [Unknown]
  - Spinal fracture [Unknown]
